FAERS Safety Report 5682137-2 (Version None)
Quarter: 2008Q1

REPORT INFORMATION
  Report Type: 
  Country: None (occurrence: None)
  Receive Date: 20080327
  Receipt Date: 20080317
  Transmission Date: 20080703
  Serious: Yes (Hospitalization)
  Sender: FDA-Public Use
  Company Number: NL-RANBAXY-2008RR-13855

PATIENT

DRUGS (8)
  1. NIFEDIPINE RANBAXY L.P. 30MG COMPRIME PELLICULE A LIBERATION PROLONGEE [Suspect]
     Indication: HYPERTENSION
     Dosage: 60 MG, QD
  2. NIFEDIPINE RANBAXY L.P. 30MG COMPRIME PELLICULE A LIBERATION PROLONGEE [Suspect]
     Indication: ANGINA PECTORIS
  3. AMLODIPINE BASICS 5MG TABLETS [Suspect]
     Dosage: 10 MG, QD
  4. AMILORIDE HYDROCHLORIDE/ HYDROCHLOROTHIAZIDE [Suspect]
     Dosage: 50 MG-5 MG
  5. SIMVASTATIN [Concomitant]
     Indication: BLOOD CHOLESTEROL INCREASED
     Dosage: 10 MG, QD
  6. ATENOLOL [Concomitant]
     Indication: HYPERTENSION
     Dosage: 100 MG, QD
  7. ATENOLOL [Concomitant]
     Indication: ANGINA PECTORIS
  8. LEVOTHYROXINE SODIUM [Concomitant]
     Indication: HYPERTHYROIDISM
     Dosage: 0.100 MG, QD

REACTIONS (2)
  - OEDEMA [None]
  - ORTHOSTATIC HYPOTENSION [None]
